FAERS Safety Report 20140262 (Version 1)
Quarter: 2021Q4

REPORT INFORMATION
  Report Type: Spontaneous
  Country: RU (occurrence: RU)
  Receive Date: 20211202
  Receipt Date: 20211202
  Transmission Date: 20220303
  Serious: Yes (Other)
  Sender: FDA-Public Use
  Company Number: RU-009507513-2111RUS010169

PATIENT
  Age: 51 Year
  Sex: Female

DRUGS (1)
  1. PEMBROLIZUMAB [Suspect]
     Active Substance: PEMBROLIZUMAB
     Dosage: 2 MILLIGRAM
     Dates: start: 20190301

REACTIONS (6)
  - Malignant melanoma [Recovered/Resolved with Sequelae]
  - Brunner^s gland hyperplasia [Unknown]
  - Melanosis [Unknown]
  - Gastritis [Unknown]
  - Duodenitis [Unknown]
  - Incorrect dose administered [Unknown]

NARRATIVE: CASE EVENT DATE: 20190301
